FAERS Safety Report 5011135-7 (Version None)
Quarter: 2006Q2

REPORT INFORMATION
  Report Type: 
  Country: None (occurrence: None)
  Receive Date: 20060523
  Receipt Date: 20060523
  Transmission Date: 20061013
  Serious: No
  Sender: FDA-Public Use
  Company Number: None

PATIENT
  Age: 42 Year
  Sex: Female

DRUGS (1)
  1. GADOLINIUM [Suspect]
     Indication: NUCLEAR MAGNETIC RESONANCE IMAGING
     Dates: start: 20051115

REACTIONS (5)
  - ASTHENIA [None]
  - FACIAL PARESIS [None]
  - HYPOAESTHESIA [None]
  - PARAESTHESIA [None]
  - PHARYNGEAL OEDEMA [None]
